FAERS Safety Report 15259251 (Version 2)
Quarter: 2018Q3

REPORT INFORMATION
  Report Type: Spontaneous
  Country: US (occurrence: US)
  Receive Date: 20180809
  Receipt Date: 20180820
  Transmission Date: 20181010
  Serious: Yes (Hospitalization)
  Sender: FDA-Public Use
  Company Number: US-ROCHE-2166494

PATIENT
  Age: 72 Year
  Sex: Female
  Weight: 68.1 kg

DRUGS (9)
  1. HCTZ [Concomitant]
     Active Substance: HYDROCHLOROTHIAZIDE
     Indication: HYPERTENSION
     Dosage: YES
     Route: 065
  2. CLONIDINE. [Concomitant]
     Active Substance: CLONIDINE
     Indication: HYPERTENSION
     Dosage: UNKNOWN
     Route: 065
  3. HYDRALAZINE [Concomitant]
     Active Substance: HYDRALAZINE HYDROCHLORIDE
     Indication: HYPERTENSION
     Dosage: PRN ;ONGOING: UNKNOWN
     Route: 065
  4. LORAZEPAM. [Concomitant]
     Active Substance: LORAZEPAM
     Indication: HYPERTENSION
     Dosage: PRN
     Route: 065
  5. PRAVASTATIN. [Concomitant]
     Active Substance: PRAVASTATIN
     Indication: BLOOD CHOLESTEROL INCREASED
     Dosage: YES
     Route: 065
  6. AVASTIN [Suspect]
     Active Substance: BEVACIZUMAB
     Indication: EYE NAEVUS
     Dosage: ON 13?JUN?2018?SECOND INJECTION.
     Route: 031
     Dates: start: 20180510
  7. AMLODIPINE [Concomitant]
     Active Substance: AMLODIPINE BESYLATE
     Indication: HYPERTENSION
     Dosage: YES
     Route: 065
  8. BETAXOLOL. [Concomitant]
     Active Substance: BETAXOLOL
     Indication: HYPERTENSION
     Dosage: YES
     Route: 065
  9. LOSARTAN. [Concomitant]
     Active Substance: LOSARTAN
     Indication: HYPERTENSION
     Dosage: ONGOING: YES
     Route: 065

REACTIONS (9)
  - Nausea [Recovered/Resolved]
  - Tremor [Recovered/Resolved]
  - Palpitations [Recovered/Resolved]
  - Dry mouth [Recovered/Resolved]
  - Off label use [Unknown]
  - Hypertension [Recovered/Resolved]
  - Headache [Recovered/Resolved]
  - Feeling jittery [Recovered/Resolved]
  - Intentional product use issue [Unknown]

NARRATIVE: CASE EVENT DATE: 20180510
